FAERS Safety Report 4831292-2 (Version None)
Quarter: 2005Q4

REPORT INFORMATION
  Report Type: 
  Country: None (occurrence: None)
  Receive Date: 20051118
  Receipt Date: 20051109
  Transmission Date: 20060501
  Serious: Yes (Other)
  Sender: FDA-Public Use
  Company Number: 2005AP05840

PATIENT
  Age: 17 Year
  Sex: Male
  Weight: 40 kg

DRUGS (5)
  1. OMEPRAZOLE [Suspect]
     Indication: OESOPHAGEAL DISORDER
  2. CLOBAZAM [Interacting]
  3. LAMOTRIGINE [Interacting]
     Route: 048
  4. MAXOLON [Concomitant]
  5. ZANTAC [Concomitant]
     Route: 048

REACTIONS (2)
  - CONVULSION [None]
  - DRUG INTERACTION [None]
